FAERS Safety Report 8557244-7 (Version None)
Quarter: 2012Q3

REPORT INFORMATION
  Report Type: 
  Country: None (occurrence: None)
  Receive Date: 20120801
  Receipt Date: 20120730
  Transmission Date: 20120928
  Serious: Yes (Other)
  Sender: FDA-Public Use
  Company Number: PHFR2012GB003385

PATIENT
  Sex: Male

DRUGS (3)
  1. PALIPERIDONE [Concomitant]
     Indication: SCHIZOAFFECTIVE DISORDER
     Dosage: 150 MG, DAILY
     Route: 030
     Dates: end: 20120504
  2. CLOZARIL [Suspect]
     Indication: SCHIZOPHRENIA
     Route: 048
     Dates: start: 20120525, end: 20120625
  3. VALPROATE SODIUM [Concomitant]
     Dosage: 250 MG, BID
     Route: 048

REACTIONS (9)
  - AUTONOMIC NERVOUS SYSTEM IMBALANCE [None]
  - PLATELET COUNT DECREASED [None]
  - OROPHARYNGEAL PAIN [None]
  - PYREXIA [None]
  - INFLUENZA LIKE ILLNESS [None]
  - BLOOD CREATINE PHOSPHOKINASE INCREASED [None]
  - BLOOD PRESSURE FLUCTUATION [None]
  - UPPER RESPIRATORY TRACT INFECTION [None]
  - NEUROLEPTIC MALIGNANT SYNDROME [None]
